FAERS Safety Report 5090811-4 (Version None)
Quarter: 2006Q3

REPORT INFORMATION
  Report Type: 
  Country: None (occurrence: None)
  Receive Date: 20060823
  Receipt Date: 20060815
  Transmission Date: 20061208
  Serious: Yes (Life-Threatening, Hospitalization)
  Sender: FDA-Public Use
  Company Number: GXKR2006ES04828

PATIENT
  Age: 39 Year
  Sex: Male

DRUGS (9)
  1. ISONIAZID [Suspect]
     Indication: TUBERCULOSIS
     Dosage: 300 MG DAILY,
  2. PYRAZINAMIDE [Suspect]
     Indication: TUBERCULOSIS
     Dosage: 1800 MG, DAILY,
  3. RIFAMPICIN [Suspect]
     Dosage: 720 MG, QD,
  4. VANCOMYCIN [Concomitant]
  5. CEFTAZIDIME (CEFTAZIDIME) [Concomitant]
  6. ETHAMBUTOL (ETHAMBUTOL) [Concomitant]
  7. LEVOFLOXACIN [Concomitant]
  8. STREPTOMYCIN [Concomitant]
  9. CIPROFLOXACIN [Concomitant]

REACTIONS (10)
  - ASCITES [None]
  - COAGULOPATHY [None]
  - CYTOLYTIC HEPATITIS [None]
  - HEPATIC ATROPHY [None]
  - HEPATIC ENCEPHALOPATHY [None]
  - HEPATIC FAILURE [None]
  - LIVER TRANSPLANT [None]
  - PYREXIA [None]
  - RASH [None]
  - TUBERCULOSIS [None]
